FAERS Safety Report 7978923 (Version 3)
Quarter: 2013Q1

REPORT INFORMATION
  Report Type: Report from Study
  Country: IT (occurrence: IT)
  Receive Date: 20110607
  Receipt Date: 20130215
  Transmission Date: 20140127
  Serious: Yes (Hospitalization)
  Sender: FDA-Public Use
  Company Number: IT-JNJFOC-20110512721

PATIENT
  Age: 58 Year
  Sex: Male
  Weight: 87 kg

DRUGS (5)
  1. ABIRATERONE ACETATE [Suspect]
     Route: 048
  2. ABIRATERONE ACETATE [Suspect]
     Indication: PROSTATE CANCER METASTATIC
     Route: 048
     Dates: start: 20110214, end: 20110425
  3. PREDNISOLONE [Suspect]
     Indication: PROSTATE CANCER METASTATIC
     Route: 065
     Dates: start: 20110214, end: 20110525
  4. FENTANYL [Concomitant]
     Indication: PAIN
     Dates: start: 201012, end: 20110525
  5. BISOPROLOL [Concomitant]
     Indication: ARRHYTHMIA
     Dates: start: 201101

REACTIONS (1)
  - Pulmonary embolism [Not Recovered/Not Resolved]
